FAERS Safety Report 21346897 (Version 1)
Quarter: 2022Q3

REPORT INFORMATION
  Report Type: Spontaneous
  Country: US (occurrence: None)
  Receive Date: 20220916
  Receipt Date: 20220916
  Transmission Date: 20221027
  Serious: Yes (Other)
  Sender: FDA-Public Use
  Company Number: None

PATIENT
  Sex: Female

DRUGS (18)
  1. TETRABENAZINE [Suspect]
     Active Substance: TETRABENAZINE
     Indication: Huntington^s disease
     Dosage: 25 MG ORAL?TAKE ONE TABLET BY MOUTH TWICE DAILY
     Route: 048
     Dates: start: 20190501
  2. ACETAMINOPHN [Concomitant]
  3. CARBAMAZEPINE [Concomitant]
     Active Substance: CARBAMAZEPINE
  4. CLONAZEPAM [Concomitant]
     Active Substance: CLONAZEPAM
  5. CLOTRIM/BETA CRE DIPROP [Concomitant]
  6. DICLOFENAC [Concomitant]
     Active Substance: DICLOFENAC
  7. DICYCLOMINE [Concomitant]
     Active Substance: DICYCLOMINE HYDROCHLORIDE
  8. GABAPENTIN [Concomitant]
     Active Substance: GABAPENTIN
  9. LEVETIRACETAM [Concomitant]
     Active Substance: LEVETIRACETAM
  10. LISINOPRIL [Concomitant]
  11. NORETHINDRON [Concomitant]
  12. OMEPRAZOLE [Concomitant]
     Active Substance: OMEPRAZOLE
  13. PROMETHAZINE [Concomitant]
     Active Substance: PROMETHAZINE HYDROCHLORIDE
  14. RIZATRIPTAN [Concomitant]
     Active Substance: RIZATRIPTAN
  15. ROPINIROLE [Concomitant]
     Active Substance: ROPINIROLE
  16. SERTRALINE [Concomitant]
     Active Substance: SERTRALINE HYDROCHLORIDE
  17. TETRABENAZINE [Concomitant]
     Active Substance: TETRABENAZINE
  18. TOPIRAMATE [Concomitant]
     Active Substance: TOPIRAMATE

REACTIONS (1)
  - Intentional dose omission [None]
